FAERS Safety Report 24642147 (Version 1)
Quarter: 2024Q4

REPORT INFORMATION
  Report Type: Spontaneous
  Country: US (occurrence: None)
  Receive Date: 20241119
  Receipt Date: 20241119
  Transmission Date: 20250114
  Serious: Yes (Life-Threatening)
  Sender: Public
  Company Number: None

PATIENT
  Age: 32 Year
  Sex: Female
  Weight: 92.25 kg

DRUGS (3)
  1. PYRIDOXINE\TIRZEPATIDE [Suspect]
     Active Substance: PYRIDOXINE\TIRZEPATIDE
     Indication: Weight decreased
     Dosage: OTHER QUANTITY : 2 INJECTION(S);?OTHER FREQUENCY : 2.5MG EVERY 7 DAYS;?OTHER ROUTE : INJECTION UNDER
     Route: 050
     Dates: start: 20241007, end: 20241021
  2. LEXAPRO [Concomitant]
     Active Substance: ESCITALOPRAM OXALATE
  3. Vistaril [Concomitant]

REACTIONS (3)
  - Panic attack [None]
  - Anxiety [None]
  - Anxiety [None]

NARRATIVE: CASE EVENT DATE: 20241014
